FAERS Safety Report 10758693 (Version 1)
Quarter: 2015Q1

REPORT INFORMATION
  Report Type: Spontaneous
  Country: US (occurrence: None)
  Receive Date: 20150123
  Receipt Date: 20150123
  Transmission Date: 20150721
  Serious: No
  Sender: FDA-Public Use
  Company Number: 2014TUS009072

PATIENT
  Age: 59 Year
  Sex: Male
  Weight: 63.5 kg

DRUGS (5)
  1. BUDESONIDE. [Concomitant]
     Active Substance: BUDESONIDE
  2. HYZAAR (HYDROCHLOROTHIAZIDE, LOSRATAN POTASSIUM0 [Concomitant]
  3. ENTOCORT (BUDESONIDE) [Concomitant]
  4. METHOTREXATE SODIUM. [Concomitant]
     Active Substance: METHOTREXATE SODIUM
  5. ENTYVIO [Suspect]
     Active Substance: VEDOLIZUMAB
     Indication: CROHN^S DISEASE
     Dosage: 300 MG, FIRST DOSE, INTRAVENOUS
     Route: 042
     Dates: start: 20140811, end: 20140811

REACTIONS (7)
  - Crohn^s disease [None]
  - Arthralgia [None]
  - Joint swelling [None]
  - Fatigue [None]
  - Dry skin [None]
  - Headache [None]
  - Peripheral swelling [None]

NARRATIVE: CASE EVENT DATE: 20140811
